FAERS Safety Report 9911378 (Version 2)
Quarter: 2014Q1

REPORT INFORMATION
  Report Type: Spontaneous
  Country: US (occurrence: US)
  Receive Date: 20140219
  Receipt Date: 20140219
  Transmission Date: 20141002
  Serious: No
  Sender: FDA-Public Use
  Company Number: US-GILEAD-2012-0055420

PATIENT
  Age: 87 Year
  Sex: Female

DRUGS (1)
  1. LETAIRIS [Suspect]
     Indication: PULMONARY HYPERTENSION
     Dosage: 5 MG, UNK
     Route: 048
     Dates: start: 20110318

REACTIONS (6)
  - Arthritis [Unknown]
  - Hearing impaired [Unknown]
  - Malaise [Unknown]
  - Pain [Unknown]
  - Spinal pain [Unknown]
  - Bone pain [Unknown]
